FAERS Safety Report 10979361 (Version 9)
Quarter: 2019Q4

REPORT INFORMATION
  Report Type: Report from Study
  Country: IT (occurrence: IT)
  Receive Date: 20150402
  Receipt Date: 20191120
  Transmission Date: 20200122
  Serious: Yes (Other)
  Sender: FDA-Public Use
  Company Number: PHHY2015IT004457

PATIENT
  Age: 28 Year
  Sex: Female

DRUGS (1)
  1. GILENYA [Suspect]
     Active Substance: FINGOLIMOD HYDROCHLORIDE
     Indication: MULTIPLE SCLEROSIS
     Dosage: UNK UNK, QD
     Route: 048
     Dates: start: 20140730, end: 20150505

REACTIONS (6)
  - Lymphocyte count decreased [Unknown]
  - Epilepsy [Recovered/Resolved]
  - Blood alkaline phosphatase increased [Unknown]
  - Central nervous system lesion [Recovered/Resolved]
  - Gamma-glutamyltransferase increased [Recovered/Resolved]
  - Urinary tract infection [Recovered/Resolved]

NARRATIVE: CASE EVENT DATE: 20140904
